FAERS Safety Report 8234202-3 (Version None)
Quarter: 2012Q1

REPORT INFORMATION
  Report Type: 
  Country: None (occurrence: None)
  Receive Date: 20120326
  Receipt Date: 20120313
  Transmission Date: 20120608
  Serious: Yes (Other)
  Sender: FDA-Public Use
  Company Number: US-SANOFI-AVENTIS-2012SA017654

PATIENT
  Age: 43 Year
  Sex: Female
  Weight: 59.87 kg

DRUGS (6)
  1. LYRICA [Suspect]
     Indication: NEURALGIA
     Dates: start: 20070101
  2. ALL OTHER THERAPEUTIC PRODUCTS [Concomitant]
  3. TYLENOL [Concomitant]
     Indication: MIGRAINE
     Dosage: 300-600MG
  4. TEGRETOL [Concomitant]
  5. ALLEGRA [Suspect]
  6. GABAPENTIN [Concomitant]
     Dates: start: 20090101

REACTIONS (10)
  - MULTIPLE FRACTURES [None]
  - PSORIASIS [None]
  - RIB FRACTURE [None]
  - FEELING ABNORMAL [None]
  - PNEUMOTHORAX [None]
  - RESPIRATORY DISORDER [None]
  - TENSION [None]
  - DRUG INTERACTION [None]
  - NERVOUSNESS [None]
  - WEIGHT INCREASED [None]
